FAERS Safety Report 10263352 (Version 2)
Quarter: 2014Q2

REPORT INFORMATION
  Report Type: Spontaneous
  Country: US (occurrence: US)
  Receive Date: 20140626
  Receipt Date: 20140626
  Transmission Date: 20141212
  Serious: Yes (Other)
  Sender: FDA-Public Use
  Company Number: US-MYLANLABS-2014S1014789

PATIENT
  Age: 61 Year
  Sex: Male
  Weight: 72.58 kg

DRUGS (25)
  1. ATORVASTATIN CALCIUM TABLETS [Suspect]
     Indication: HYPERLIPIDAEMIA
     Route: 048
     Dates: start: 201401, end: 20140118
  2. VITAMIN B COMPLEX [Concomitant]
     Route: 060
  3. BOTOX [Concomitant]
     Indication: SPASMODIC DYSPHONIA
     Dosage: 2-4 CC INJECTIONS Q5-7 MONTHS
  4. LAMOTRIGINE [Concomitant]
     Route: 048
     Dates: start: 20140107
  5. MELATONIN [Concomitant]
  6. ATIVAN [Concomitant]
     Route: 048
  7. PANCREATIC ENZYMES [Concomitant]
     Dosage: WITH EACH MEAL
  8. ASTEPRO [Concomitant]
     Dosage: 2 SPRAYS
     Route: 045
  9. SEROQUEL [Concomitant]
     Dosage: 25 TO 50MG AT BEDTIME
     Route: 048
  10. VITAMIN D3 [Concomitant]
     Route: 048
  11. RANITIDINE HCL [Concomitant]
     Route: 048
  12. SINGULAIR [Concomitant]
     Route: 048
  13. OMEPRAZOLE [Concomitant]
     Route: 048
  14. ASPIRIN E.C [Concomitant]
     Route: 048
  15. FUROSEMIDE [Concomitant]
     Route: 048
     Dates: start: 20140107
  16. FLONASE /00972202/ [Concomitant]
     Dosage: 2 SPRAYS IN EACH NOSTRIL AT BEDTIME
     Route: 045
     Dates: start: 20140107
  17. CARDURA [Concomitant]
     Route: 048
     Dates: start: 20140107
  18. LISINOPRIL [Concomitant]
     Route: 048
     Dates: start: 20140107
  19. PROPRANOLOL HCL [Concomitant]
     Route: 048
     Dates: start: 20140107
  20. NORVASC [Concomitant]
     Route: 048
     Dates: start: 20140107
  21. SYMBICORT [Concomitant]
     Dosage: 160/4.5 UG/ACT - 2 PUFFS BID
     Route: 055
     Dates: start: 20140107
  22. CYCLOBENZAPRINE HCL [Concomitant]
     Route: 048
     Dates: start: 20110701
  23. TRIAZOLAM [Concomitant]
     Dosage: HS PRN
  24. ALBUTEROL HFA [Concomitant]
     Dosage: 2 PUFFS QID PRN
     Route: 055
     Dates: start: 20130218
  25. LITHIUM [Concomitant]

REACTIONS (6)
  - Muscle atrophy [Recovering/Resolving]
  - Irritable bowel syndrome [Recovering/Resolving]
  - Gastritis [Recovering/Resolving]
  - Muscular weakness [Recovering/Resolving]
  - Nausea [Recovering/Resolving]
  - Gastrooesophageal reflux disease [Recovering/Resolving]
